FAERS Safety Report 7655949-3 (Version None)
Quarter: 2011Q3

REPORT INFORMATION
  Report Type: 
  Country: None (occurrence: None)
  Receive Date: 20110804
  Receipt Date: 20110727
  Transmission Date: 20111222
  Serious: Yes (Hospitalization, Other)
  Sender: FDA-Public Use
  Company Number: US-B.I. PHARMACEUTICALS,INC./RIDGEFIELD-2011-BP-07465BP

PATIENT
  Age: 84 Year
  Sex: Female

DRUGS (1)
  1. PRADAXA [Suspect]
     Indication: ATRIAL FIBRILLATION
     Route: 048

REACTIONS (6)
  - GASTRIC ULCER [None]
  - DEHYDRATION [None]
  - HYPOTENSION [None]
  - GASTROINTESTINAL HAEMORRHAGE [None]
  - DUODENAL ULCER [None]
  - MELAENA [None]
